FAERS Safety Report 17274259 (Version 2)
Quarter: 2020Q1

REPORT INFORMATION
  Report Type: Spontaneous
  Country: US (occurrence: US)
  Receive Date: 20200115
  Receipt Date: 20200117
  Transmission Date: 20200409
  Serious: Yes (Hospitalization)
  Sender: FDA-Public Use
  Company Number: US-JACOBUS PHARMACEUTICAL COMPANY, INC.-2079068

PATIENT
  Age: 60 Year
  Sex: Male

DRUGS (14)
  1. PASER [Suspect]
     Active Substance: AMINOSALICYLIC ACID
  2. CYANOCOBALAMIN. [Concomitant]
     Active Substance: CYANOCOBALAMIN
  3. FOLIC ACID. [Concomitant]
     Active Substance: FOLIC ACID
  4. MIRTAZAPINE. [Concomitant]
     Active Substance: MIRTAZAPINE
  5. ABACAVIR AND LAMIVUDINE [Concomitant]
     Active Substance: ABACAVIR SULFATE\LAMIVUDINE
  6. TRAMADOL. [Concomitant]
     Active Substance: TRAMADOL
  7. AMLODIPINE [Concomitant]
     Active Substance: AMLODIPINE BESYLATE
  8. DOCUSATE SODIUM. [Concomitant]
     Active Substance: DOCUSATE SODIUM
  9. ESCITALOPRAM [Concomitant]
     Active Substance: ESCITALOPRAM OXALATE
  10. ASPIRIN. [Concomitant]
     Active Substance: ASPIRIN
  11. RALTEGAVIR [Concomitant]
     Active Substance: RALTEGRAVIR
  12. DARUNAVIR [Concomitant]
     Active Substance: DARUNAVIR
  13. PREGABALIN. [Concomitant]
     Active Substance: PREGABALIN
  14. RITONAVIR. [Concomitant]
     Active Substance: RITONAVIR

REACTIONS (1)
  - Hypoxia [Unknown]
